FAERS Safety Report 4659388-9 (Version None)
Quarter: 2005Q2

REPORT INFORMATION
  Report Type: 
  Country: None (occurrence: None)
  Receive Date: 20050510
  Receipt Date: 20050429
  Transmission Date: 20051028
  Serious: Yes (Other)
  Sender: FDA-Public Use
  Company Number: 200510300BNE

PATIENT
  Age: 54 Year
  Sex: Female

DRUGS (1)
  1. CIPROFLOXACIN HCL [Suspect]
     Indication: URINARY TRACT INFECTION
     Dosage: 250 MG, TOTAL DAILY, ORAL
     Route: 048
     Dates: start: 20050411, end: 20050412

REACTIONS (4)
  - CONTUSION [None]
  - INFLAMMATION [None]
  - JOINT INJURY [None]
  - TENDON DISORDER [None]
